FAERS Safety Report 6275427-6 (Version None)
Quarter: 2009Q3

REPORT INFORMATION
  Report Type: 
  Country: None (occurrence: None)
  Receive Date: 20090721
  Receipt Date: 20090713
  Transmission Date: 20100115
  Serious: Yes (Death, Life-Threatening, Hospitalization, Other)
  Sender: FDA-Public Use
  Company Number: PT-AMGEN-UK291314

PATIENT
  Sex: Female

DRUGS (10)
  1. ARANESP [Suspect]
     Indication: RENAL FAILURE CHRONIC
     Route: 058
     Dates: start: 20071201, end: 20071201
  2. NEORECORMON [Suspect]
     Dates: start: 20080101
  3. CALCIUM [Concomitant]
     Route: 048
  4. VITAMIN D [Concomitant]
     Route: 048
  5. INSULIN [Concomitant]
     Route: 058
  6. AMLODIPINE [Concomitant]
     Route: 048
  7. SYMBICORT [Concomitant]
     Route: 055
  8. OMEPRAZOLE [Concomitant]
     Route: 048
  9. FOLIC ACID [Concomitant]
     Route: 048
  10. VITAMIN B COMPLEX CAP [Concomitant]
     Route: 048

REACTIONS (5)
  - ANAEMIA [None]
  - BRONCHOSPASM [None]
  - GASTROINTESTINAL HAEMORRHAGE [None]
  - REACTION TO DRUG EXCIPIENTS [None]
  - SKIN LESION [None]
